FAERS Safety Report 20168652 (Version 1)
Quarter: 2021Q4

REPORT INFORMATION
  Report Type: Spontaneous
  Country: US (occurrence: US)
  Receive Date: 20211210
  Receipt Date: 20211210
  Transmission Date: 20220303
  Serious: No
  Sender: FDA-Public Use
  Company Number: US-TEVA-2021-US-1979623

PATIENT
  Age: 79 Year
  Sex: Male

DRUGS (4)
  1. PROAIR HFA [Suspect]
     Active Substance: ALBUTEROL SULFATE
     Dosage: LIQUID FORM
     Route: 065
  2. PROAIR HFA [Suspect]
     Active Substance: ALBUTEROL SULFATE
  3. PROAIR HFA [Suspect]
     Active Substance: ALBUTEROL SULFATE
  4. PROAIR HFA [Suspect]
     Active Substance: ALBUTEROL SULFATE

REACTIONS (2)
  - Drug ineffective [Unknown]
  - Product formulation issue [Unknown]
